FAERS Safety Report 6835376-9 (Version None)
Quarter: 2010Q3

REPORT INFORMATION
  Report Type: 
  Country: None (occurrence: None)
  Receive Date: 20100708
  Receipt Date: 20100625
  Transmission Date: 20110219
  Serious: Yes (Hospitalization)
  Sender: FDA-Public Use
  Company Number: DSU-2010-02706

PATIENT
  Age: 70 Year
  Sex: Female
  Weight: 67.1324 kg

DRUGS (5)
  1. BENICAR [Suspect]
     Indication: HYPERTENSION
     Dosage: 20 MG (20 MG, QD), PER ORAL; 20 MG (20 MG, QD), ORAL; 20 MG (20 MG,QD), PER ORAL
     Route: 048
     Dates: start: 20050101, end: 20100101
  2. BENICAR [Suspect]
     Indication: HYPERTENSION
     Dosage: 20 MG (20 MG, QD), PER ORAL; 20 MG (20 MG, QD), ORAL; 20 MG (20 MG,QD), PER ORAL
     Route: 048
     Dates: start: 20100413, end: 20100101
  3. BENICAR [Suspect]
     Indication: HYPERTENSION
     Dosage: 20 MG (20 MG, QD), PER ORAL; 20 MG (20 MG, QD), ORAL; 20 MG (20 MG,QD), PER ORAL
     Route: 048
     Dates: start: 20100507, end: 20100507
  4. ASA (ACETYLSALICYLIC ACID) (TABLET) (ACETYLSALICYLIC ACID) [Concomitant]
  5. MULTIVITAMIN [Concomitant]

REACTIONS (3)
  - CHOLELITHIASIS [None]
  - NAUSEA [None]
  - VOMITING [None]
